FAERS Safety Report 5490645-2 (Version None)
Quarter: 2007Q4

REPORT INFORMATION
  Report Type: 
  Country: None (occurrence: None)
  Receive Date: 20071019
  Receipt Date: 20071010
  Transmission Date: 20080405
  Serious: Yes (Other)
  Sender: FDA-Public Use
  Company Number: DE-JNJFOC-20070902542

PATIENT

DRUGS (1)
  1. REMICADE [Suspect]
     Indication: ANKYLOSING SPONDYLITIS
     Dosage: EVERY 3-4 MONTHS AS NEEDED
     Route: 042

REACTIONS (2)
  - ATRIAL FIBRILLATION [None]
  - CORONARY ARTERY DISEASE [None]
